FAERS Safety Report 16969460 (Version 1)
Quarter: 2019Q4

REPORT INFORMATION
  Report Type: Spontaneous
  Country: US (occurrence: US)
  Receive Date: 20190911
  Receipt Date: 20190911
  Transmission Date: 20200122
  Serious: No
  Sender: FDA-Public Use
  Company Number: None

PATIENT
  Sex: Female

DRUGS (5)
  1. FAMOTIDINE. [Concomitant]
     Active Substance: FAMOTIDINE
  2. POT CL MICRO [Concomitant]
  3. OCALIVA [Suspect]
     Active Substance: OBETICHOLIC ACID
     Indication: PRIMARY BILIARY CHOLANGITIS
     Route: 048
     Dates: start: 20190626
  4. FUROSEMIDE. [Concomitant]
     Active Substance: FUROSEMIDE
  5. URSODIOL. [Concomitant]
     Active Substance: URSODIOL

REACTIONS (2)
  - Rash [None]
  - Pruritus [None]
